FAERS Safety Report 9917061 (Version 2)
Quarter: 2014Q1

REPORT INFORMATION
  Report Type: Report from Study
  Country: US (occurrence: US)
  Receive Date: 20140221
  Receipt Date: 20140305
  Transmission Date: 20141002
  Serious: Yes (Hospitalization)
  Sender: FDA-Public Use
  Company Number: US-ACTELION-A-US2014-94808

PATIENT
  Age: 83 Year
  Sex: Male

DRUGS (1)
  1. TRACLEER [Suspect]
     Indication: PULMONARY ARTERIAL HYPERTENSION
     Dosage: UNK
     Route: 048

REACTIONS (5)
  - Fall [Recovering/Resolving]
  - Hip fracture [Recovering/Resolving]
  - Hip arthroplasty [Recovering/Resolving]
  - Pulmonary embolism [Recovering/Resolving]
  - Ileus [Recovering/Resolving]
